FAERS Safety Report 17648167 (Version 1)
Quarter: 2020Q2

REPORT INFORMATION
  Report Type: Spontaneous
  Country: US (occurrence: US)
  Receive Date: 20200409
  Receipt Date: 20200409
  Transmission Date: 20200713
  Serious: Yes (Hospitalization)
  Sender: FDA-Public Use
  Company Number: US-HIKMA PHARMACEUTICALS USA INC.-US-H14001-20-01652

PATIENT
  Age: 14 Year
  Sex: Female

DRUGS (2)
  1. PYRIDIUM [Suspect]
     Active Substance: PHENAZOPYRIDINE
     Indication: SUICIDE ATTEMPT
     Route: 065
  2. CLARITHROMYCIN. [Suspect]
     Active Substance: CLARITHROMYCIN
     Indication: SUICIDE ATTEMPT
     Route: 065

REACTIONS (1)
  - Intentional overdose [Unknown]
